FAERS Safety Report 21954461 (Version 1)
Quarter: 2023Q1

REPORT INFORMATION
  Report Type: Spontaneous
  Country: IN (occurrence: IN)
  Receive Date: 20230204
  Receipt Date: 20230204
  Transmission Date: 20230418
  Serious: Yes (Death)
  Sender: FDA-Public Use
  Company Number: IN-EXELIXIS-CABO-22052118

PATIENT
  Age: 29 Year
  Sex: Female

DRUGS (1)
  1. CABOMETYX [Suspect]
     Active Substance: CABOZANTINIB S-MALATE
     Indication: Gastrointestinal stromal tumour
     Dosage: UNK
     Dates: start: 202101

REACTIONS (2)
  - Malignant neoplasm progression [Fatal]
  - Off label use [Unknown]
